FAERS Safety Report 21811419 (Version 2)
Quarter: 2023Q4

REPORT INFORMATION
  Report Type: Spontaneous
  Country: US (occurrence: US)
  Receive Date: 20230103
  Receipt Date: 20231006
  Transmission Date: 20240109
  Serious: Yes (Other)
  Sender: FDA-Public Use
  Company Number: US-PFIZER INC-PV202200133647

PATIENT
  Age: 59 Year
  Sex: Male

DRUGS (6)
  1. METHYLPREDNISOLONE SODIUM SUCCINATE [Interacting]
     Active Substance: METHYLPREDNISOLONE SODIUM SUCCINATE
     Dosage: UNK
     Route: 040
  2. MYCOPHENOLATE MOFETIL [Interacting]
     Active Substance: MYCOPHENOLATE MOFETIL
     Dosage: UNK
  3. TACROLIMUS [Interacting]
     Active Substance: TACROLIMUS
     Dosage: UNK
  4. PREDNISONE [Interacting]
     Active Substance: PREDNISONE
     Dosage: UNK
  5. CLOZAPINE [Interacting]
     Active Substance: CLOZAPINE
     Indication: Schizophrenia
     Dosage: 100 MG, DAILY (PERIOPERATIVELY)
  6. SERTRALINE [Suspect]
     Active Substance: SERTRALINE HYDROCHLORIDE
     Indication: Schizophrenia
     Dosage: 100 MG, DAILY (PERIOPERATIVELY)

REACTIONS (9)
  - Drug interaction [Recovered/Resolved]
  - Disorientation [Recovered/Resolved]
  - Logorrhoea [Recovered/Resolved]
  - Thinking abnormal [Recovered/Resolved]
  - Sleep deficit [Recovered/Resolved]
  - Hallucination, visual [Recovered/Resolved]
  - Euphoric mood [Recovered/Resolved]
  - Energy increased [Recovered/Resolved]
  - Tangentiality [Recovered/Resolved]
